FAERS Safety Report 7526290-4 (Version None)
Quarter: 2011Q2

REPORT INFORMATION
  Report Type: 
  Country: None (occurrence: None)
  Receive Date: 20110606
  Receipt Date: 20110523
  Transmission Date: 20111010
  Serious: Yes (Other)
  Sender: FDA-Public Use
  Company Number: US-BAYER-200922777NA

PATIENT
  Age: 46 Year
  Sex: Female

DRUGS (9)
  1. BETASERON [Suspect]
     Indication: RELAPSING-REMITTING MULTIPLE SCLEROSIS
     Dosage: UNK
     Route: 058
     Dates: start: 20050305
  2. BETASERON [Suspect]
     Dosage: 8 MIU, QOD
     Route: 058
     Dates: start: 20090505
  3. BETASERON [Suspect]
     Dosage: UNK
     Dates: start: 20090508, end: 20100412
  4. BETASERON [Suspect]
     Dosage: UNK
     Dates: start: 20100801, end: 20110101
  5. HYDROCODONE [HYDROCODONE] [Concomitant]
     Dosage: 7.5 MG, Q4HR
  6. VISTARIL [HYDROXYZINE HYDROCHLORIDE] [Concomitant]
     Indication: ANXIETY
     Dosage: UNK UNK, TID
  7. BETASERON [Suspect]
     Dosage: 6 MIU, QOD
     Route: 058
     Dates: start: 20110522
  8. BETASERON [Suspect]
     Route: 058
     Dates: start: 20080808, end: 20090302
  9. BETASERON [Suspect]
     Dosage: 4 MIU, QOD
     Route: 058
     Dates: start: 20110408

REACTIONS (28)
  - PYREXIA [None]
  - FALL [None]
  - HEADACHE [None]
  - EPISTAXIS [None]
  - INJECTION SITE HAEMATOMA [None]
  - CHEST PAIN [None]
  - WEIGHT DECREASED [None]
  - DECUBITUS ULCER [None]
  - LOSS OF CONSCIOUSNESS [None]
  - VOMITING [None]
  - HYPOAESTHESIA [None]
  - SINUSITIS [None]
  - HEAD INJURY [None]
  - TREMOR [None]
  - NODULE [None]
  - SNEEZING [None]
  - INTERVERTEBRAL DISC PROTRUSION [None]
  - PAIN [None]
  - DIARRHOEA [None]
  - CONCUSSION [None]
  - DIZZINESS [None]
  - RASH ERYTHEMATOUS [None]
  - HYPERVENTILATION [None]
  - HYPERHIDROSIS [None]
  - BACK PAIN [None]
  - RASH GENERALISED [None]
  - SCAR [None]
  - EYELID PTOSIS [None]
